FAERS Safety Report 9596175 (Version 1)
Quarter: 2013Q4

REPORT INFORMATION
  Report Type: Spontaneous
  Country: GB (occurrence: GB)
  Receive Date: 20131004
  Receipt Date: 20131004
  Transmission Date: 20140711
  Serious: Yes (Hospitalization, Other)
  Sender: FDA-Public Use
  Company Number: GB-ACTAVIS-2013-17403

PATIENT
  Age: 51 Year
  Sex: Male

DRUGS (14)
  1. COLCHICINE (UNKNOWN) [Suspect]
     Indication: GOUT
     Dosage: 500 ?G 12 TIMES DAILY  SELF-REDUCED DUE TO SIDE-EFFECTS TO 6 PER DAY
     Route: 048
     Dates: start: 20061026
  2. DICLOFENAC (UNKNOWN) [Suspect]
     Indication: GOUT
     Dosage: UNK
     Route: 048
     Dates: start: 20061026, end: 20061102
  3. LISINOPRIL [Concomitant]
     Indication: PRODUCT USED FOR UNKNOWN INDICATION
     Dosage: 20 MG, DAILY
     Route: 065
  4. INSULATARD PORCINE [Concomitant]
     Indication: PRODUCT USED FOR UNKNOWN INDICATION
     Dosage: UNK
     Route: 058
  5. ASPIRIN [Concomitant]
     Indication: PRODUCT USED FOR UNKNOWN INDICATION
     Dosage: 75 MG, DAILY
     Route: 065
  6. OMEPRAZOLE [Concomitant]
     Indication: PRODUCT USED FOR UNKNOWN INDICATION
     Dosage: 20 MG, DAILY
     Route: 065
  7. ATENOLOL [Concomitant]
     Indication: PRODUCT USED FOR UNKNOWN INDICATION
     Dosage: 50 MG, DAILY
     Route: 065
  8. BEZAFIBRATE [Concomitant]
     Indication: PRODUCT USED FOR UNKNOWN INDICATION
     Dosage: 400 MG, DAILY,
     Route: 065
  9. SIMVASTATIN [Concomitant]
     Indication: PRODUCT USED FOR UNKNOWN INDICATION
     Dosage: 40 MG, DAILY
     Route: 065
  10. AMLODIPINE [Concomitant]
     Indication: PRODUCT USED FOR UNKNOWN INDICATION
     Dosage: 5 MG, DAILY
     Route: 065
  11. FERROUS SULPHATE                   /00023503/ [Concomitant]
     Indication: PRODUCT USED FOR UNKNOWN INDICATION
     Dosage: UNK
     Route: 065
  12. ACTRAPID                           /01223401/ [Concomitant]
     Indication: PRODUCT USED FOR UNKNOWN INDICATION
     Dosage: UNK
     Route: 065
  13. BENDROFLUMETHIAZIDE [Concomitant]
     Indication: PRODUCT USED FOR UNKNOWN INDICATION
     Dosage: 2.5 MG, DAILY
     Route: 065
  14. CO-DYDRAMOL [Concomitant]
     Indication: PRODUCT USED FOR UNKNOWN INDICATION
     Dosage: UNK, PATIENT WAS TAKING ABOVE RECOMMENDED LIMIT
     Route: 065

REACTIONS (9)
  - Renal failure acute [Recovered/Resolved]
  - Diarrhoea [Recovered/Resolved]
  - Dehydration [Unknown]
  - Metabolic acidosis [Recovered/Resolved]
  - Weight decreased [Unknown]
  - Malaise [Unknown]
  - Pallor [Unknown]
  - Inflammatory marker increased [Unknown]
  - Drug dispensing error [Unknown]
